FAERS Safety Report 21665970 (Version 1)
Quarter: 2022Q4

REPORT INFORMATION
  Report Type: Spontaneous
  Country: IT (occurrence: IT)
  Receive Date: 20221201
  Receipt Date: 20221201
  Transmission Date: 20230113
  Serious: Yes (Other)
  Sender: FDA-Public Use
  Company Number: None

PATIENT
  Age: 45 Year
  Sex: Female

DRUGS (2)
  1. GEMCITABINE [Suspect]
     Active Substance: GEMCITABINE
     Indication: Breast cancer recurrent
     Dosage: UNIT DOSE : 1267 MG, DURATION : 7 DAYS, ON 07/25/2022 THE THERAPY WAS TEMPORARILY SUSPENDED, TO BE R
     Dates: start: 20220718, end: 20220725
  2. DOCETAXEL [Suspect]
     Active Substance: DOCETAXEL
     Indication: Breast cancer recurrent
     Dosage: UNIT DOSE : 158.4 MG, DURATION : 7 DAYS, ON 07/25/2022 THE THERAPY WAS TEMPORARILY SUSPENDED, TO BE
     Dates: start: 20220718, end: 20220725

REACTIONS (3)
  - Hypertransaminasaemia [Recovering/Resolving]
  - Asthenia [Recovered/Resolved]
  - Diarrhoea [Recovered/Resolved]

NARRATIVE: CASE EVENT DATE: 20220712
